FAERS Safety Report 7878792-9 (Version None)
Quarter: 2011Q4

REPORT INFORMATION
  Report Type: 
  Country: None (occurrence: None)
  Receive Date: 20111101
  Receipt Date: 20111027
  Transmission Date: 20120403
  Serious: Yes (Hospitalization, Other)
  Sender: FDA-Public Use
  Company Number: SE-BAYER-SE-2006-023526

PATIENT
  Age: 27 Year
  Sex: Female

DRUGS (1)
  1. YASMIN [Suspect]
     Dosage: 1 TAB(S), 1X/21DAYS [DAILY DOSE: 1 TAB(S)]
     Route: 048
     Dates: start: 20000101, end: 20051003

REACTIONS (6)
  - CHEST PAIN [None]
  - COUGH [None]
  - HYPOAESTHESIA [None]
  - DYSPNOEA [None]
  - ATELECTASIS [None]
  - PULMONARY EMBOLISM [None]
